FAERS Safety Report 16025182 (Version 2)
Quarter: 2019Q2

REPORT INFORMATION
  Report Type: Spontaneous
  Country: US (occurrence: US)
  Receive Date: 20190301
  Receipt Date: 20190412
  Transmission Date: 20190711
  Serious: No
  Sender: FDA-Public Use
  Company Number: US-SA-2019SA056296

PATIENT
  Age: 67 Year
  Sex: Male

DRUGS (1)
  1. DUPIXENT [Suspect]
     Active Substance: DUPILUMAB
     Indication: ASTHMA
     Dosage: 600 MG, 1X
     Route: 058
     Dates: start: 20190124

REACTIONS (4)
  - Purpura [Unknown]
  - Rash [Unknown]
  - Eosinophil count increased [Unknown]
  - Parapsoriasis [Unknown]

NARRATIVE: CASE EVENT DATE: 201902
